FAERS Safety Report 5724259-3 (Version None)
Quarter: 2008Q2

REPORT INFORMATION
  Report Type: 
  Country: None (occurrence: None)
  Receive Date: 20080424
  Receipt Date: 20070911
  Transmission Date: 20081010
  Serious: Yes (Other)
  Sender: FDA-Public Use
  Company Number: TEST00207033533

PATIENT
  Age: 58 Year
  Sex: Female

DRUGS (1)
  1. ANDROGEL [Suspect]
     Indication: ILL-DEFINED DISORDER
     Dosage: 10 GRAM(S) QD TRANSCUTANEOUS DAILY DOSE: 10 GRAM(S)
     Dates: start: 20020101, end: 20070830

REACTIONS (1)
  - HYPERSENSITIVITY [None]
